FAERS Safety Report 4549609-5 (Version None)
Quarter: 2005Q1

REPORT INFORMATION
  Report Type: 
  Country: None (occurrence: None)
  Receive Date: 20050106
  Receipt Date: 20041221
  Transmission Date: 20050727
  Serious: Yes (Hospitalization)
  Sender: FDA-Public Use
  Company Number: 197831

PATIENT
  Age: 41 Year
  Sex: Female

DRUGS (9)
  1. AVONEX [Suspect]
     Indication: MULTIPLE SCLEROSIS
     Dosage: 30 UG;QW;IM
     Route: 030
     Dates: start: 19991001, end: 20040101
  2. AVONEX [Suspect]
     Indication: MULTIPLE SCLEROSIS
     Dosage: 30 UG;QW;IM
     Route: 030
     Dates: start: 20040101
  3. AMANTADINE [Concomitant]
  4. NORVASC [Concomitant]
  5. FLEXERIL [Concomitant]
  6. PROZAC [Concomitant]
  7. VALIUM [Concomitant]
  8. PERCOCET [Concomitant]
  9. HYDROCHLOROTHIAZIDE [Concomitant]

REACTIONS (5)
  - ANKLE FRACTURE [None]
  - ARTHRITIS [None]
  - DYSMENORRHOEA [None]
  - INJURY [None]
  - MENORRHAGIA [None]
